FAERS Safety Report 16490065 (Version 1)
Quarter: 2019Q2

REPORT INFORMATION
  Report Type: Report from Study
  Country: CA (occurrence: CA)
  Receive Date: 20190628
  Receipt Date: 20190628
  Transmission Date: 20190711
  Serious: Yes (Other)
  Sender: FDA-Public Use
  Company Number: CA-ORION CORPORATION ORION PHARMA-TREX2019-2048

PATIENT
  Age: 73 Year
  Sex: Male

DRUGS (10)
  1. METHOTREXATE (TRADE NAME UNKNOWN) [Suspect]
     Active Substance: METHOTREXATE
     Indication: PRODUCT USED FOR UNKNOWN INDICATION
     Route: 065
  2. COSENTYX [Interacting]
     Active Substance: SECUKINUMAB
     Route: 058
  3. DOXYCYCLINE. [Concomitant]
     Active Substance: DOXYCYCLINE
     Route: 065
  4. COSENTYX [Interacting]
     Active Substance: SECUKINUMAB
     Route: 058
  5. ACTEMRA [Interacting]
     Active Substance: TOCILIZUMAB
     Indication: PRODUCT USED FOR UNKNOWN INDICATION
     Route: 065
  6. COSENTYX [Interacting]
     Active Substance: SECUKINUMAB
     Route: 058
  7. COSENTYX [Interacting]
     Active Substance: SECUKINUMAB
     Indication: PSORIASIS
     Route: 058
  8. COSENTYX [Interacting]
     Active Substance: SECUKINUMAB
     Route: 058
  9. ENBREL [Concomitant]
     Active Substance: ETANERCEPT
     Route: 065
  10. COSENTYX [Interacting]
     Active Substance: SECUKINUMAB
     Route: 058

REACTIONS (7)
  - Drug interaction [Not Recovered/Not Resolved]
  - Drug ineffective [Not Recovered/Not Resolved]
  - Psoriasis [Not Recovered/Not Resolved]
  - Skin plaque [Not Recovered/Not Resolved]
  - Pruritus [Not Recovered/Not Resolved]
  - Abscess limb [Not Recovered/Not Resolved]
  - Infection [Not Recovered/Not Resolved]
